FAERS Safety Report 8238410-7 (Version None)
Quarter: 2012Q1

REPORT INFORMATION
  Report Type: 
  Country: None (occurrence: None)
  Receive Date: 20120326
  Receipt Date: 20120309
  Transmission Date: 20120608
  Serious: Yes (Death, Hospitalization, Disabling)
  Sender: FDA-Public Use
  Company Number: 2012SP014471

PATIENT
  Age: 59 Year
  Sex: Male
  Weight: 75.5 kg

DRUGS (5)
  1. RAMIPRIL [Concomitant]
  2. PEGINTERFERON ALFA-2A [Suspect]
     Indication: HEPATITIS C
     Dosage: 180 MCG;QW;SC
     Route: 058
     Dates: start: 20120210, end: 20120224
  3. RIBAVIRIN [Suspect]
     Indication: HEPATITIS C
     Dosage: 6 DF;BID;PO
     Route: 048
     Dates: start: 20120210, end: 20120305
  4. GS-5885 (INVESTIGATIONAL DRUG) [Suspect]
     Indication: HEPATITIS C
     Dosage: 1 DF;QD;PO
     Route: 048
     Dates: start: 20120210, end: 20120305
  5. GS-9451 (INVESTIGATIONAL DRUG) [Suspect]
     Indication: HEPATITIS C
     Dosage: 2 DF;BID;PO
     Route: 048
     Dates: start: 20120210, end: 20120305

REACTIONS (3)
  - HAEMORRHAGIC STROKE [None]
  - LOSS OF CONSCIOUSNESS [None]
  - BLOOD PRESSURE SYSTOLIC INCREASED [None]
